FAERS Safety Report 4882042-5 (Version None)
Quarter: 2006Q1

REPORT INFORMATION
  Report Type: 
  Country: None (occurrence: None)
  Receive Date: 20060117
  Receipt Date: 20051213
  Transmission Date: 20060701
  Serious: Yes (Hospitalization)
  Sender: FDA-Public Use
  Company Number: ES-BRISTOL-MYERS SQUIBB COMPANY-13223003

PATIENT
  Age: 50 Year
  Sex: Male
  Weight: 40 kg

DRUGS (6)
  1. PRAREDUCT [Suspect]
     Indication: LIPID METABOLISM DISORDER
     Route: 048
     Dates: start: 20000101
  2. CHLORTHALIDONE [Suspect]
     Route: 048
     Dates: start: 20000101, end: 20051014
  3. COROPRES [Concomitant]
     Route: 048
  4. HEMOVAS [Concomitant]
     Route: 048
  5. COLME [Concomitant]
     Route: 048
  6. ALFUZOSIN HCL [Concomitant]
     Route: 048

REACTIONS (3)
  - BLOOD CREATINE PHOSPHOKINASE INCREASED [None]
  - HYPOKALAEMIA [None]
  - MYALGIA [None]
